FAERS Safety Report 5853579-7 (Version None)
Quarter: 2008Q3

REPORT INFORMATION
  Report Type: 
  Country: None (occurrence: None)
  Receive Date: 20080822
  Receipt Date: 20080813
  Transmission Date: 20090109
  Serious: Yes (Other)
  Sender: FDA-Public Use
  Company Number: AU-WYE-G02000408

PATIENT
  Sex: Male

DRUGS (3)
  1. EFFEXOR XR [Suspect]
     Indication: ANXIETY
     Dosage: ^225MG DAILY^
     Route: 048
  2. EFFEXOR XR [Suspect]
     Dosage: ^150MG DAILY^
     Route: 048
  3. EFFEXOR XR [Suspect]
     Dosage: ^75MG DAILY^
     Route: 048
     Dates: start: 20070401

REACTIONS (11)
  - ABDOMINAL PAIN UPPER [None]
  - ANXIETY [None]
  - CONDITION AGGRAVATED [None]
  - DIZZINESS [None]
  - HEADACHE [None]
  - INCREASED APPETITE [None]
  - MYALGIA [None]
  - PANIC ATTACK [None]
  - SYNCOPE [None]
  - THIRST [None]
  - WEIGHT INCREASED [None]
